FAERS Safety Report 22051971 (Version 1)
Quarter: 2023Q1

REPORT INFORMATION
  Report Type: Spontaneous
  Country: NL (occurrence: NL)
  Receive Date: 20230302
  Receipt Date: 20230302
  Transmission Date: 20230418
  Serious: Yes (Other)
  Sender: FDA-Public Use
  Company Number: None

PATIENT
  Sex: Female
  Weight: 70 kg

DRUGS (1)
  1. FLUCONAZOLE [Suspect]
     Active Substance: FLUCONAZOLE
     Indication: Vulvovaginal candidiasis
     Dosage: 150 MILLIGRAM DAILY; 1 X PER DAY, 1 PCS , BRAND NAME NOT SPECIFIED
     Dates: start: 20230117, end: 20230118

REACTIONS (1)
  - Hypoglycaemia [Recovered/Resolved]
